FAERS Safety Report 7777374-7 (Version None)
Quarter: 2011Q3

REPORT INFORMATION
  Report Type: 
  Country: None (occurrence: None)
  Receive Date: 20110926
  Receipt Date: 20110921
  Transmission Date: 20111222
  Serious: Yes (Death)
  Sender: FDA-Public Use
  Company Number: PHHY2011MX83992

PATIENT
  Age: 96 Year
  Sex: Female

DRUGS (2)
  1. EXELON [Suspect]
     Dosage: 4.6 MG/5 CM2, 1 PATCH PER DAY
     Route: 062
     Dates: start: 20100601, end: 20110601
  2. RISPERDAL [Concomitant]
     Indication: ANXIETY
     Dosage: 1 DRP, DAILY
     Dates: start: 20040301, end: 20110601

REACTIONS (1)
  - MYOCARDIAL INFARCTION [None]
